FAERS Safety Report 20483774 (Version 1)
Quarter: 2022Q1

REPORT INFORMATION
  Report Type: Spontaneous
  Country: ZA (occurrence: ZA)
  Receive Date: 20220217
  Receipt Date: 20220217
  Transmission Date: 20220423
  Serious: Yes (Other)
  Sender: FDA-Public Use
  Company Number: ZA-SA-SAC20220206000106

PATIENT
  Age: 66 Year
  Sex: Female

DRUGS (4)
  1. ARAVA [Suspect]
     Active Substance: LEFLUNOMIDE
     Dosage: UNK,
     Dates: start: 200707
  2. METHOTREXATE [Suspect]
     Active Substance: METHOTREXATE
     Dosage: 10 MG, QW
     Dates: start: 200707
  3. SULFASALAZINE [Suspect]
     Active Substance: SULFASALAZINE
     Dosage: 1 G, BID
     Dates: start: 200801
  4. CHLOROQUINE [Suspect]
     Active Substance: CHLOROQUINE
     Dosage: 150 MG, QD
     Dates: start: 200707

REACTIONS (2)
  - Rheumatoid arthritis [Unknown]
  - Therapy non-responder [Unknown]
